FAERS Safety Report 20860915 (Version 1)
Quarter: 2022Q2

REPORT INFORMATION
  Report Type: Spontaneous
  Country: US (occurrence: US)
  Receive Date: 20220523
  Receipt Date: 20220523
  Transmission Date: 20220721
  Serious: No
  Sender: FDA-Public Use
  Company Number: US-BRISTOL-MYERS SQUIBB COMPANY-2022-028944

PATIENT
  Age: 68 Year
  Sex: Female
  Weight: 68.038 kg

DRUGS (8)
  1. REVLIMID [Suspect]
     Active Substance: LENALIDOMIDE
     Indication: Plasma cell myeloma
     Dosage: FREQ-14 DAYS ON/7 DAYS OFF
     Route: 048
     Dates: start: 20220329
  2. REVLIMID [Suspect]
     Active Substance: LENALIDOMIDE
     Route: 048
     Dates: start: 20220207, end: 20220329
  3. REVLIMID [Suspect]
     Active Substance: LENALIDOMIDE
     Route: 048
     Dates: start: 20220325, end: 20220404
  4. REVLIMID [Suspect]
     Active Substance: LENALIDOMIDE
     Route: 048
     Dates: start: 20220420
  5. IBUPROFEN [Concomitant]
     Active Substance: IBUPROFEN
     Indication: Plasma cell myeloma
     Route: 048
     Dates: start: 20220214
  6. ESCITALOPRAM [Concomitant]
     Active Substance: ESCITALOPRAM OXALATE
     Indication: Plasma cell myeloma
     Route: 048
     Dates: start: 20220214
  7. PREDNISONE [Concomitant]
     Active Substance: PREDNISONE
     Indication: Plasma cell myeloma
     Route: 048
     Dates: start: 20220214
  8. ALBUTEROL SULFATE [Concomitant]
     Active Substance: ALBUTEROL SULFATE
     Indication: Plasma cell myeloma
     Dosage: 108(90 BASE) INHALA
     Dates: start: 20220214

REACTIONS (2)
  - Diarrhoea [Unknown]
  - Vomiting [Unknown]

NARRATIVE: CASE EVENT DATE: 20220401
